FAERS Safety Report 6165219-0 (Version None)
Quarter: 2009Q2

REPORT INFORMATION
  Report Type: 
  Country: None (occurrence: None)
  Receive Date: 20090423
  Receipt Date: 20090416
  Transmission Date: 20091009
  Serious: Yes (Other)
  Sender: FDA-Public Use
  Company Number: US-PFIZER INC-2004106538

PATIENT
  Sex: Female

DRUGS (13)
  1. PROVERA [Suspect]
     Indication: HORMONE REPLACEMENT THERAPY
     Route: 048
     Dates: start: 19851023
  2. PROVERA [Suspect]
     Indication: MENOPAUSE
  3. PREMARIN [Suspect]
     Indication: HORMONE REPLACEMENT THERAPY
     Dosage: 1.25 MG, UNK
     Route: 048
     Dates: start: 19880302, end: 19970301
  4. PREMARIN [Suspect]
     Indication: MENOPAUSE
  5. ESTROGEN NOS [Suspect]
     Indication: HORMONE REPLACEMENT THERAPY
     Dosage: 1.25 MG, UNK
     Route: 065
     Dates: start: 19880325, end: 19881211
  6. ESTROGEN NOS [Suspect]
     Indication: MENOPAUSE
  7. ESTRADERM [Suspect]
     Indication: HORMONE REPLACEMENT THERAPY
     Dates: start: 19880914
  8. ESTRADERM [Suspect]
     Indication: MENOPAUSE
  9. PREMPRO [Suspect]
     Indication: HORMONE REPLACEMENT THERAPY
     Dosage: 0.625/2.5MG, UNK
     Route: 048
     Dates: start: 19970314, end: 19991209
  10. PREMPRO [Suspect]
     Indication: MENOPAUSE
  11. PROCARDIA XL [Concomitant]
     Indication: HYPERTENSION
     Dosage: UNK
     Dates: start: 19970530, end: 20020415
  12. HYDROCHLOROTHIAZIDE [Concomitant]
     Indication: DIURETIC THERAPY
     Dosage: 25 MG, UNK
     Dates: start: 19940101
  13. HYDROCODONE [Concomitant]
     Indication: PAIN
     Dates: start: 19980217

REACTIONS (1)
  - BREAST CANCER FEMALE [None]
